FAERS Safety Report 16251376 (Version 1)
Quarter: 2019Q2

REPORT INFORMATION
  Report Type: Spontaneous
  Country: US (occurrence: US)
  Receive Date: 20190426
  Receipt Date: 20190426
  Transmission Date: 20190711
  Serious: Yes (Other)
  Sender: FDA-Public Use
  Company Number: None

PATIENT
  Age: 54 Year
  Sex: Male
  Weight: 94 kg

DRUGS (8)
  1. PARENTERAL NUTRITION [Concomitant]
     Active Substance: AMINO ACIDS\DEXTROSE\ELECTROLYTES NOS
     Dates: start: 20190413, end: 20190419
  2. CEFEPIME [Concomitant]
     Active Substance: CEFEPIME HYDROCHLORIDE
     Dates: start: 20190412, end: 20190415
  3. IV VANCOMYCIN [Concomitant]
     Dates: start: 20190412, end: 20190414
  4. DEXMEDETOMIDINE. [Suspect]
     Active Substance: DEXMEDETOMIDINE
     Indication: AGITATION
     Dosage: ?          OTHER FREQUENCY:CONTINUOUS INFUSIO;?
     Route: 041
     Dates: start: 20190412, end: 20190416
  5. ALBUMIN [Concomitant]
     Active Substance: ALBUMIN HUMAN
     Dates: start: 20190413
  6. PANTOPRAZOLE [Concomitant]
     Active Substance: PANTOPRAZOLE
     Dates: start: 20190327, end: 20190419
  7. PHENYLEPHRINE [Concomitant]
     Active Substance: PHENYLEPHRINE\PHENYLEPHRINE HYDROCHLORIDE
     Dates: start: 20190418, end: 20190419
  8. HEPARIN INFUSION [Concomitant]
     Dates: start: 20190413, end: 20190418

REACTIONS (2)
  - Pyrexia [None]
  - Infusion related reaction [None]
